FAERS Safety Report 10973291 (Version 3)
Quarter: 2015Q3

REPORT INFORMATION
  Report Type: Spontaneous
  Country: DE (occurrence: DE)
  Receive Date: 20150401
  Receipt Date: 20150810
  Transmission Date: 20151125
  Serious: Yes (Death)
  Sender: FDA-Public Use
  Company Number: DE-ROCHE-1558494

PATIENT
  Age: 77 Year
  Sex: Female

DRUGS (2)
  1. RITUXIMAB [Suspect]
     Active Substance: RITUXIMAB
     Indication: MANTLE CELL LYMPHOMA STAGE IV
     Dosage: LAST DOSE PRIOR TO SAE ONSET: 16/DEC/2014
     Route: 042
     Dates: start: 20140410, end: 20141216
  2. BENDAMUSTINE [Suspect]
     Active Substance: BENDAMUSTINE
     Indication: MANTLE CELL LYMPHOMA STAGE IV
     Dosage: LAST DOSE PRIOR TO SAE ONSET: 18/SEP/2014
     Route: 042
     Dates: start: 20140314, end: 20140918

REACTIONS (3)
  - Myelodysplastic syndrome [Fatal]
  - Bronchial neoplasm [Fatal]
  - Asphyxia [Fatal]

NARRATIVE: CASE EVENT DATE: 201502
